FAERS Safety Report 12734226 (Version 1)
Quarter: 2016Q3

REPORT INFORMATION
  Report Type: Spontaneous
  Country: US (occurrence: US)
  Receive Date: 20160912
  Receipt Date: 20160912
  Transmission Date: 20161109
  Serious: No
  Sender: FDA-Public Use
  Company Number: US-JNJFOC-20160622791

PATIENT
  Sex: Male
  Weight: 57.15 kg

DRUGS (1)
  1. XARELTO [Suspect]
     Active Substance: RIVAROXABAN
     Indication: DEEP VEIN THROMBOSIS
     Route: 048

REACTIONS (4)
  - Red blood cell sedimentation rate increased [Unknown]
  - Eosinophil count increased [Unknown]
  - Diarrhoea [Unknown]
  - C-reactive protein increased [Unknown]
